FAERS Safety Report 23891197 (Version 2)
Quarter: 2024Q2

REPORT INFORMATION
  Report Type: Spontaneous
  Country: CA (occurrence: CA)
  Receive Date: 20240523
  Receipt Date: 20240619
  Transmission Date: 20240716
  Serious: Yes (Other)
  Sender: FDA-Public Use
  Company Number: CA-HLS-202401210

PATIENT
  Sex: Female

DRUGS (70)
  1. ACETAMINOPHEN [Suspect]
     Active Substance: ACETAMINOPHEN
     Indication: Pain
     Dosage: AMOUNT: 2 DOSAGE FORMS?NOT SPECIFIED DOSAGE FORM
     Route: 065
  2. ACETAMINOPHEN [Suspect]
     Active Substance: ACETAMINOPHEN
     Indication: Pyrexia
     Dosage: AMOUNT: 2 DOSAGE FORMS?NOT SPECIFIED DOSAGE FORM
     Route: 065
  3. ACETAMINOPHEN [Suspect]
     Active Substance: ACETAMINOPHEN
     Indication: Pain
     Dosage: AMOUNT: 3 DOSAGE FORMS
     Route: 065
  4. ACETAMINOPHEN [Suspect]
     Active Substance: ACETAMINOPHEN
     Indication: Pyrexia
     Dosage: AMOUNT: 3 DOSAGE FORMS
     Route: 065
  5. ACETAMINOPHEN [Suspect]
     Active Substance: ACETAMINOPHEN
     Indication: Pain
     Dosage: 1 EVERY 12 HOURS?AMOUNT: 1 DOSAGE FORMS
     Route: 065
  6. ACETAMINOPHEN [Suspect]
     Active Substance: ACETAMINOPHEN
     Indication: Pyrexia
     Dosage: 1 EVERY 12 HOURS?AMOUNT: 1 DOSAGE FORMS
     Route: 065
  7. ACETAMINOPHEN [Suspect]
     Active Substance: ACETAMINOPHEN
     Indication: Pain
     Dosage: 1 EVERY 12 HOURS?AMOUNT: 2 DOSAGE FORMS
     Route: 065
  8. ACETAMINOPHEN [Suspect]
     Active Substance: ACETAMINOPHEN
     Indication: Pyrexia
     Dosage: 1 EVERY 12 HOURS?AMOUNT: 2 DOSAGE FORMS
     Route: 065
  9. ACETAMINOPHEN [Suspect]
     Active Substance: ACETAMINOPHEN
     Indication: Pain
     Route: 065
  10. ACETAMINOPHEN [Suspect]
     Active Substance: ACETAMINOPHEN
     Indication: Pyrexia
     Route: 065
  11. ALUMINUM HYDROXIDE [Suspect]
     Active Substance: ALUMINUM HYDROXIDE
     Indication: Abdominal discomfort
     Dosage: AMOUNT: 30 ML?NOT SPECIFIED DOSAGE FORM
     Route: 048
  12. AMLODIPINE [Suspect]
     Active Substance: AMLODIPINE BESYLATE
     Indication: Product used for unknown indication
     Dosage: AMOUNT: 1 DOSAGE FORMS?TABLETS DOSAGE FORM
     Route: 065
  13. ARIPIPRAZOLE [Suspect]
     Active Substance: ARIPIPRAZOLE
     Indication: Product used for unknown indication
     Route: 066
  14. CLOTRIMAZOLE [Suspect]
     Active Substance: CLOTRIMAZOLE
     Indication: Rash
     Dosage: 1 EVERY 12 HOURS?AMOUNT: 4 DOSAGE FORMS
     Route: 065
  15. CLOZAPINE [Suspect]
     Active Substance: CLOZAPINE
     Indication: Product used for unknown indication
     Dosage: AMOUNT: 1 DOSAGE FORMS
     Route: 065
  16. CLOZAPINE [Suspect]
     Active Substance: CLOZAPINE
     Indication: Product used for unknown indication
     Dosage: AMOUNT: 3 DOSAGE FORMS
     Route: 065
  17. CONJUGATED ESTROGENS [Suspect]
     Active Substance: ESTROGENS, CONJUGATED
     Indication: Product used for unknown indication
     Dosage: AMOUNT: 5 GRAM?NOT SPECIFIED DOSAGE FORM
     Route: 061
  18. CONJUGATED ESTROGENS [Suspect]
     Active Substance: ESTROGENS, CONJUGATED
     Indication: Product used for unknown indication
     Route: 061
  19. ESTRADIOL [Suspect]
     Active Substance: ESTRADIOL
     Indication: Product used for unknown indication
     Dosage: AMOUNT: 1 DOSAGE FORMS
     Route: 067
  20. ESTRADIOL [Suspect]
     Active Substance: ESTRADIOL
     Indication: Product used for unknown indication
     Dosage: AMOUNT: 1 MILLIGRAM
     Route: 067
  21. INFLUENZA VIRUS VACCINE [Suspect]
     Active Substance: INFLUENZA VIRUS VACCINE
     Indication: Prophylaxis
     Dosage: AMOUNT: 0.2 ML?INTRA-NASAL ROUTE OF ADMINISTRATION?NOT SPECIFIED DOSAGE FORM
     Route: 065
  22. INFLUENZA VIRUS VACCINE [Suspect]
     Active Substance: INFLUENZA VIRUS VACCINE
     Indication: Product used for unknown indication
     Dosage: AMOUNT: 0.2 ML?INTRA-NASAL ROUTE OF ADMINISTRATION?NOT SPECIFIED DOSAGE FORM
     Route: 065
  23. INFLUENZA VIRUS VACCINE [Suspect]
     Active Substance: INFLUENZA VIRUS VACCINE
     Indication: Prophylaxis
     Route: 065
  24. INFLUENZA VIRUS VACCINE [Suspect]
     Active Substance: INFLUENZA VIRUS VACCINE
     Indication: Product used for unknown indication
     Route: 065
  25. LEVOTHYROXINE SODIUM [Suspect]
     Active Substance: LEVOTHYROXINE SODIUM
     Indication: Product used for unknown indication
     Dosage: AMOUNT: 1 DOSAGE FORMS
     Route: 065
  26. OLANZAPINE [Suspect]
     Active Substance: OLANZAPINE
     Indication: Mood altered
     Dosage: AMOUNT: 3 DOSAGE FORMS?NOT SPECIFIED DOSAGE FORM
     Route: 065
  27. OLANZAPINE [Suspect]
     Active Substance: OLANZAPINE
     Indication: Mood altered
     Dosage: 1 EVERY 12 HOURS
     Route: 065
  28. PHENYLEPHRINE [Suspect]
     Active Substance: PHENYLEPHRINE HYDROCHLORIDE
     Indication: Product used for unknown indication
     Route: 065
  29. PREMARIN [Suspect]
     Active Substance: ESTROGENS, CONJUGATED
     Indication: Product used for unknown indication
     Dosage: AMOUNT: 0.5 MILLIGRAM?NOT SPECIFIED DOSAGE FORM
     Route: 061
  30. PREMARIN [Suspect]
     Active Substance: ESTROGENS, CONJUGATED
     Indication: Product used for unknown indication
     Dosage: TABLETS DOSAGE FORM
     Route: 065
  31. RANITIDINE [Suspect]
     Active Substance: RANITIDINE
     Indication: Product used for unknown indication
     Dosage: 1 EVERY 12 HOURS?AMOUNT: 1 DOSAGE FORMS
     Route: 065
  32. RANITIDINE [Suspect]
     Active Substance: RANITIDINE
     Indication: Product used for unknown indication
     Dosage: 1 EVERY 12 HOURS?AMOUNT: 150 MILLIGRAM
     Route: 065
  33. RANITIDINE [Suspect]
     Active Substance: RANITIDINE
     Indication: Product used for unknown indication
     Dosage: 1 EVERY 24 HOURS?AMOUNT: 2 DOSAGE FORMS
     Route: 065
  34. REXULTI [Suspect]
     Active Substance: BREXPIPRAZOLE
     Indication: Product used for unknown indication
     Dosage: 1 EVERY 12 HOURS?TABLETS DOSAGE FORM
     Route: 065
  35. VALPROATE SODIUM [Suspect]
     Active Substance: VALPROATE SODIUM
     Indication: Product used for unknown indication
     Route: 065
  36. DIVALPROEX SODIUM [Suspect]
     Active Substance: DIVALPROEX SODIUM
     Indication: Product used for unknown indication
     Dosage: AMOUNT: 2 DOSAGE FORMS?NOT SPECIFIED DOSAGE FORM
     Route: 065
  37. VALPROIC ACID [Suspect]
     Active Substance: VALPROIC ACID
     Indication: Product used for unknown indication
     Dosage: 1 EVERY 12 HOURS
     Route: 065
  38. VITAMIN D3 [Suspect]
     Active Substance: CHOLECALCIFEROL
     Indication: Product used for unknown indication
     Dosage: AMOUNT: 1 DOSAGE FORMS?CAPSULES DOSAGE FORM
     Route: 065
  39. VITAMIN D3 [Suspect]
     Active Substance: CHOLECALCIFEROL
     Indication: Product used for unknown indication
     Route: 065
  40. ZOPICLONE [Suspect]
     Active Substance: ZOPICLONE
     Indication: Insomnia
     Dosage: TABLETS DOSAGE FORM
     Route: 065
  41. ACETAMINOPHEN\BUTALBITAL\CAFFEINE [Suspect]
     Active Substance: ACETAMINOPHEN\BUTALBITAL\CAFFEINE
     Indication: Pain
     Dosage: AMOUNT: 3 DOSAGE FORMS
     Route: 065
  42. ACETAMINOPHEN\BUTALBITAL\CAFFEINE [Suspect]
     Active Substance: ACETAMINOPHEN\BUTALBITAL\CAFFEINE
     Indication: Pyrexia
     Dosage: AMOUNT: 3 DOSAGE FORMS
     Route: 065
  43. ACETAMINOPHEN\BUTALBITAL\CAFFEINE [Suspect]
     Active Substance: ACETAMINOPHEN\BUTALBITAL\CAFFEINE
     Indication: Pain
     Dosage: 1 EVERY 12 HOURS?AMOUNT: 2 DOSAGE FORMS
     Route: 065
  44. ACETAMINOPHEN\BUTALBITAL\CAFFEINE [Suspect]
     Active Substance: ACETAMINOPHEN\BUTALBITAL\CAFFEINE
     Indication: Pyrexia
     Dosage: 1 EVERY 12 HOURS?AMOUNT: 2 DOSAGE FORMS
     Route: 065
  45. ALUMINUM [Suspect]
     Active Substance: ALUMINUM
     Indication: Abdominal discomfort
     Dosage: AMOUNT: 30 ML?LIQUID ORAL DOSAGE FORM
     Route: 048
  46. ALUMINUM [Suspect]
     Active Substance: ALUMINUM
     Indication: Mood altered
     Dosage: AMOUNT: 30 ML?LIQUID ORAL DOSAGE FORM
     Route: 048
  47. ALUMINUM [Suspect]
     Active Substance: ALUMINUM
     Indication: Prophylaxis
     Dosage: AMOUNT: 30 ML?LIQUID ORAL DOSAGE FORM
     Route: 048
  48. ALUMINUM [Suspect]
     Active Substance: ALUMINUM
     Indication: Rash
     Dosage: AMOUNT: 30 ML?LIQUID ORAL DOSAGE FORM
     Route: 048
  49. ALUMINUM [Suspect]
     Active Substance: ALUMINUM
     Indication: Product used for unknown indication
     Dosage: AMOUNT: 30 ML?LIQUID ORAL DOSAGE FORM
     Route: 048
  50. PREMARIN WITH METHYLTESTOSTERONE [Suspect]
     Active Substance: ESTROGENS, CONJUGATED\METHYLTESTOSTERONE
     Indication: Product used for unknown indication
     Dosage: AMOUNT: 5 GRAM?TABLETS DOSAGE FORM
     Route: 061
  51. PREMARIN WITH METHYLTESTOSTERONE [Suspect]
     Active Substance: ESTROGENS, CONJUGATED\METHYLTESTOSTERONE
     Indication: Product used for unknown indication
     Route: 065
  52. SIMETHICONE (DIMETHICONE) [Suspect]
     Active Substance: DIMETHICONE
     Indication: Abdominal discomfort
     Dosage: AMOUNT: 1 DOSAGE FORMS?CAPSULES DOSAGE FORM
     Route: 065
  53. SIMETHICONE (DIMETHICONE) [Suspect]
     Active Substance: DIMETHICONE
     Indication: Insomnia
     Dosage: AMOUNT: 1 DOSAGE FORMS?CAPSULES DOSAGE FORM
     Route: 065
  54. SIMETHICONE (DIMETHICONE) [Suspect]
     Active Substance: DIMETHICONE
     Indication: Product used for unknown indication
     Dosage: AMOUNT: 1 DOSAGE FORMS?CAPSULES DOSAGE FORM
     Route: 065
  55. SIMETHICONE (DIMETHICONE) [Suspect]
     Active Substance: DIMETHICONE
     Indication: Abdominal discomfort
     Dosage: AMOUNT: 2 DOSAGE FORMS?NOT SPECIFIED DOSAGE FORM
     Route: 065
  56. SIMETHICONE (DIMETHICONE) [Suspect]
     Active Substance: DIMETHICONE
     Indication: Insomnia
     Dosage: AMOUNT: 2 DOSAGE FORMS?NOT SPECIFIED DOSAGE FORM
     Route: 065
  57. SIMETHICONE (DIMETHICONE) [Suspect]
     Active Substance: DIMETHICONE
     Indication: Product used for unknown indication
     Dosage: AMOUNT: 2 DOSAGE FORMS?NOT SPECIFIED DOSAGE FORM
     Route: 065
  58. SIMETHICONE (DIMETHICONE) [Suspect]
     Active Substance: DIMETHICONE
     Indication: Abdominal discomfort
     Dosage: AMOUNT: 30 ML
     Route: 048
  59. SIMETHICONE (DIMETHICONE) [Suspect]
     Active Substance: DIMETHICONE
     Indication: Insomnia
     Dosage: AMOUNT: 30 ML
     Route: 048
  60. SIMETHICONE (DIMETHICONE) [Suspect]
     Active Substance: DIMETHICONE
     Indication: Product used for unknown indication
     Dosage: AMOUNT: 30 ML
     Route: 048
  61. SIMETHICONE (DIMETHICONE) [Suspect]
     Active Substance: DIMETHICONE
     Indication: Abdominal discomfort
     Route: 065
  62. SIMETHICONE (DIMETHICONE) [Suspect]
     Active Substance: DIMETHICONE
     Indication: Insomnia
     Route: 065
  63. SIMETHICONE (DIMETHICONE) [Suspect]
     Active Substance: DIMETHICONE
     Indication: Product used for unknown indication
     Route: 065
  64. SIMETHICONE (DIMETHICONE) [Suspect]
     Active Substance: DIMETHICONE
     Indication: Abdominal discomfort
     Dosage: TABLETS DOSAGE FORM
     Route: 065
  65. SIMETHICONE (DIMETHICONE) [Suspect]
     Active Substance: DIMETHICONE
     Indication: Insomnia
     Dosage: TABLETS DOSAGE FORM
     Route: 065
  66. SIMETHICONE (DIMETHICONE) [Suspect]
     Active Substance: DIMETHICONE
     Indication: Product used for unknown indication
     Dosage: TABLETS DOSAGE FORM
     Route: 065
  67. SIMETHICONE (DIMETHICONE) [Suspect]
     Active Substance: DIMETHICONE
     Indication: Abdominal discomfort
     Dosage: 1 EVERY 12 HOURS
     Route: 065
  68. SIMETHICONE (DIMETHICONE) [Suspect]
     Active Substance: DIMETHICONE
     Indication: Insomnia
     Dosage: 1 EVERY 12 HOURS
     Route: 065
  69. SIMETHICONE (DIMETHICONE) [Suspect]
     Active Substance: DIMETHICONE
     Indication: Product used for unknown indication
     Dosage: 1 EVERY 12 HOURS
     Route: 065
  70. ACETAMINOPHEN\CARBINOXAMINE MALEATE\PHENYLEPHRINE HYDROCHLORIDE [Suspect]
     Active Substance: ACETAMINOPHEN\CARBINOXAMINE MALEATE\PHENYLEPHRINE HYDROCHLORIDE
     Indication: Pain
     Route: 065

REACTIONS (5)
  - Drug interaction [Unknown]
  - Drug level increased [Unknown]
  - Electrocardiogram QT prolonged [Unknown]
  - Product use issue [Unknown]
  - Schizoaffective disorder [Unknown]
